FAERS Safety Report 7528879-5 (Version None)
Quarter: 2011Q2

REPORT INFORMATION
  Report Type: 
  Country: None (occurrence: None)
  Receive Date: 20110607
  Receipt Date: 20110404
  Transmission Date: 20111010
  Serious: No
  Sender: FDA-Public Use
  Company Number: US-ASTRAZENECA-2011SE21278

PATIENT
  Sex: Male

DRUGS (4)
  1. WARFARIN SODIUM [Interacting]
  2. PLAQUINOL [Concomitant]
     Dosage: UNKNOWN
  3. PRILOSEC OTC [Suspect]
     Indication: DYSPEPSIA
     Route: 048
  4. ASPIRIN [Concomitant]
     Dosage: UNKNOWN

REACTIONS (2)
  - LABELLED DRUG-DRUG INTERACTION MEDICATION ERROR [None]
  - ERUCTATION [None]
